FAERS Safety Report 7291458-1 (Version None)
Quarter: 2011Q1

REPORT INFORMATION
  Report Type: 
  Country: None (occurrence: None)
  Receive Date: 20110214
  Receipt Date: 20101103
  Transmission Date: 20110831
  Serious: Yes (Life-Threatening, Hospitalization)
  Sender: FDA-Public Use
  Company Number: US-GENZYME-MOZO-1000380

PATIENT
  Sex: Male
  Weight: 86.8 kg

DRUGS (9)
  1. NEUPOGEN [Concomitant]
     Indication: HAEMATOPOIETIC STEM CELL MOBILISATION
     Dosage: UNK
  2. MOZOBIL [Suspect]
     Indication: NON-HODGKIN'S LYMPHOMA
  3. NEUTRA-PHOS-K [Concomitant]
  4. MOZOBIL [Suspect]
     Indication: HAEMATOPOIETIC STEM CELL MOBILISATION
     Dosage: 1.2 ML, QD
     Dates: start: 20050531, end: 20050603
  5. CALCIUM [Concomitant]
  6. PREDNISONE [Concomitant]
  7. CRESTOR [Concomitant]
  8. LEVOTHYROXINE SODIUM [Concomitant]
     Indication: HYPOTHYROIDISM
  9. MAGNESIUM OXIDE [Concomitant]

REACTIONS (1)
  - ACUTE MYELOID LEUKAEMIA [None]
